FAERS Safety Report 14544931 (Version 1)
Quarter: 2018Q1

REPORT INFORMATION
  Report Type: Spontaneous
  Country: JP (occurrence: JP)
  Receive Date: 20180217
  Receipt Date: 20180217
  Transmission Date: 20180509
  Serious: Yes (Death, Other)
  Sender: FDA-Public Use
  Company Number: JP-TEVA-2018-JP-858171

PATIENT
  Age: 74 Year
  Sex: Female

DRUGS (2)
  1. CYCLOSPORINE. [Suspect]
     Active Substance: CYCLOSPORINE
     Route: 065
  2. PREDNISOLONE. [Suspect]
     Active Substance: PREDNISOLONE
     Route: 048

REACTIONS (6)
  - Cytomegalovirus infection [Fatal]
  - Death [Fatal]
  - Atrioventricular block complete [Fatal]
  - Rhythm idioventricular [Fatal]
  - Atrial fibrillation [Fatal]
  - Mucormycosis [Fatal]
